FAERS Safety Report 7530848-6 (Version None)
Quarter: 2011Q2

REPORT INFORMATION
  Report Type: 
  Country: None (occurrence: None)
  Receive Date: 20110608
  Receipt Date: 20110524
  Transmission Date: 20111010
  Serious: Yes (Other)
  Sender: FDA-Public Use
  Company Number: US-PAR PHARMACEUTICAL, INC-2011SCPR003022

PATIENT
  Sex: Female

DRUGS (1)
  1. CALCITONIN [Suspect]
     Indication: PRODUCT USED FOR UNKNOWN INDICATION
     Dosage: UNK, UNKNOWN
     Route: 045

REACTIONS (6)
  - DECREASED APPETITE [None]
  - BACK PAIN [None]
  - PRURITUS GENERALISED [None]
  - EPISTAXIS [None]
  - DIZZINESS [None]
  - FATIGUE [None]
